FAERS Safety Report 4414937-0 (Version None)
Quarter: 2004Q3

REPORT INFORMATION
  Report Type: 
  Country: None (occurrence: None)
  Receive Date: 20040804
  Receipt Date: 20040727
  Transmission Date: 20050211
  Serious: Yes (Death)
  Sender: FDA-Public Use
  Company Number: JP-BRISTOL-MYERS SQUIBB COMPANY-12652970

PATIENT
  Age: 58 Year
  Sex: Female

DRUGS (2)
  1. PARAPLATIN [Suspect]
     Indication: PERITONEAL CARCINOMA
     Route: 042
     Dates: start: 20040514, end: 20040514
  2. TAXOTERE [Suspect]
     Indication: PERITONEAL CARCINOMA
     Route: 042
     Dates: start: 20040514, end: 20040514

REACTIONS (1)
  - CEREBRAL HAEMORRHAGE [None]
